FAERS Safety Report 5244269-2 (Version None)
Quarter: 2007Q1

REPORT INFORMATION
  Report Type: 
  Country: None (occurrence: None)
  Receive Date: 20070222
  Receipt Date: 20070214
  Transmission Date: 20070707
  Serious: Yes (Hospitalization)
  Sender: FDA-Public Use
  Company Number: 2007AP00805

PATIENT
  Age: 25811 Day
  Sex: Male
  Weight: 64 kg

DRUGS (4)
  1. IRESSA [Suspect]
     Indication: LUNG ADENOCARCINOMA
     Route: 048
     Dates: start: 20070111
  2. IRESSA [Suspect]
     Indication: METASTASES TO CENTRAL NERVOUS SYSTEM
     Route: 048
     Dates: start: 20070111
  3. CEFTAZIDIME [Suspect]
     Dates: start: 20070111
  4. ISOSORBIDE MONONITRATE [Suspect]
     Dates: start: 20070111

REACTIONS (1)
  - INTESTINAL OBSTRUCTION [None]
